FAERS Safety Report 5765612-1 (Version None)
Quarter: 2008Q2

REPORT INFORMATION
  Report Type: 
  Country: None (occurrence: None)
  Receive Date: 20080605
  Receipt Date: 20080605
  Transmission Date: 20081010
  Serious: No
  Sender: FDA-Public Use
  Company Number: None

PATIENT
  Age: 85 Year
  Sex: Male
  Weight: 96.25 kg

DRUGS (3)
  1. LOSARTAN POTASSIUM [Suspect]
     Indication: DIABETES MELLITUS
     Dosage: 50 MG  PO
     Route: 048
     Dates: start: 20060731, end: 20070130
  2. LOSARTAN POTASSIUM [Suspect]
     Indication: HYPERTENSION
     Dosage: 50 MG  PO
     Route: 048
     Dates: start: 20060731, end: 20070130
  3. NAPROXEN [Suspect]
     Indication: PAIN
     Dosage: 500 MG PRN PO
     Route: 048
     Dates: start: 20030114, end: 20070130

REACTIONS (8)
  - ABDOMINAL PAIN [None]
  - ACUTE PRERENAL FAILURE [None]
  - BLOOD POTASSIUM INCREASED [None]
  - ELECTROCARDIOGRAM CHANGE [None]
  - PROSTATIC OBSTRUCTION [None]
  - PROSTATOMEGALY [None]
  - RENAL FAILURE ACUTE [None]
  - VOMITING [None]
